FAERS Safety Report 9026946 (Version 2)
Quarter: 2013Q1

REPORT INFORMATION
  Report Type: Spontaneous
  Country: US (occurrence: US)
  Receive Date: 20130123
  Receipt Date: 20130128
  Transmission Date: 20140127
  Serious: Yes (Other)
  Sender: FDA-Public Use
  Company Number: US-PFIZER INC-2013024460

PATIENT
  Age: 33 Year
  Sex: Female
  Weight: 56.7 kg

DRUGS (7)
  1. LYRICA [Suspect]
     Indication: PARTIAL SEIZURES
     Dosage: 200 MG, 2X/DAY
     Route: 048
     Dates: start: 2007, end: 201301
  2. LYRICA [Suspect]
     Indication: CONVULSION
  3. FERROUS SULPHATE [Suspect]
     Indication: ANAEMIA
     Dosage: 325 MG, 2X/DAY
     Dates: start: 20121005, end: 20121222
  4. TOPIRAMATE [Concomitant]
     Indication: CONVULSION
     Dosage: 100 MG, 2X/DAY
     Route: 048
     Dates: start: 2012
  5. FIORICET [Concomitant]
     Indication: MIGRAINE
     Dosage: 50/325/40MG AS NEEDED
  6. VENLAFAXINE [Concomitant]
     Indication: DEPRESSION
     Dosage: 100 MG, 3X/DAY
  7. VENLAFAXINE [Concomitant]
     Indication: ANXIETY

REACTIONS (10)
  - Anaemia [Unknown]
  - Malaise [Unknown]
  - Pain [Not Recovered/Not Resolved]
  - Middle insomnia [Unknown]
  - Drug ineffective [Unknown]
  - Withdrawal syndrome [Not Recovered/Not Resolved]
  - Nausea [Not Recovered/Not Resolved]
  - Diarrhoea [Not Recovered/Not Resolved]
  - Vomiting [Not Recovered/Not Resolved]
  - Migraine [Not Recovered/Not Resolved]
